FAERS Safety Report 5003113-9 (Version None)
Quarter: 2006Q2

REPORT INFORMATION
  Report Type: 
  Country: None (occurrence: None)
  Receive Date: 20060516
  Receipt Date: 20060403
  Transmission Date: 20061013
  Serious: Yes (Hospitalization)
  Sender: FDA-Public Use
  Company Number: US-MERCK-0604USA00173

PATIENT
  Age: 59 Year
  Sex: Female
  Weight: 57 kg

DRUGS (13)
  1. VIOXX [Suspect]
     Indication: OSTEOARTHRITIS
     Route: 048
     Dates: start: 20030201, end: 20040901
  2. ASPIRIN [Concomitant]
     Route: 065
  3. TOPROL-XL [Concomitant]
     Route: 065
  4. PROTONIX [Concomitant]
     Route: 065
  5. PRAVACHOL [Concomitant]
     Route: 065
  6. AMITRIPTYLINE HYDROCHLORIDE [Concomitant]
     Route: 065
  7. HYDROCHLOROTHIAZIDE [Concomitant]
     Route: 065
  8. NICODERM [Concomitant]
     Route: 065
  9. AVELOX [Concomitant]
     Route: 065
  10. NORVASC [Concomitant]
     Route: 065
  11. PREVACID [Concomitant]
     Route: 065
  12. PLAVIX [Concomitant]
     Route: 065
  13. ISOSORBIDE MONONITRATE ER [Concomitant]
     Route: 065

REACTIONS (4)
  - ANGINA PECTORIS [None]
  - CORONARY ARTERY DISEASE [None]
  - MYOCARDIAL INFARCTION [None]
  - THROMBOSIS [None]
